FAERS Safety Report 15077025 (Version 2)
Quarter: 2018Q3

REPORT INFORMATION
  Report Type: Spontaneous
  Country: CN (occurrence: CN)
  Receive Date: 20180627
  Receipt Date: 20180705
  Transmission Date: 20181010
  Serious: Yes (Hospitalization, Other)
  Sender: FDA-Public Use
  Company Number: CN-009507513-1806CHN010492

PATIENT
  Age: 54 Year
  Sex: Female

DRUGS (1)
  1. TIENAM [Suspect]
     Active Substance: CILASTATIN SODIUM\IMIPENEM
     Indication: ANTI-INFECTIVE THERAPY
     Dosage: REPORTED AS 0.5Q6

REACTIONS (3)
  - Stem cell transplant [Unknown]
  - Haemolysis [Unknown]
  - Drug ineffective [Unknown]
